FAERS Safety Report 19981360 (Version 1)
Quarter: 2021Q4

REPORT INFORMATION
  Report Type: Spontaneous
  Country: FR (occurrence: FR)
  Receive Date: 20211022
  Receipt Date: 20211022
  Transmission Date: 20220304
  Serious: Yes (Hospitalization)
  Sender: FDA-Public Use
  Company Number: FR-ROCHE-2939370

PATIENT
  Sex: Male

DRUGS (1)
  1. ESBRIET [Suspect]
     Active Substance: PIRFENIDONE
     Indication: Idiopathic pulmonary fibrosis
     Dosage: FOR 2 YEARS
     Route: 048

REACTIONS (7)
  - Weight decreased [Not Recovered/Not Resolved]
  - Confusional state [Unknown]
  - Asthenia [Unknown]
  - Cerebrovascular accident [Unknown]
  - Decreased appetite [Unknown]
  - COVID-19 [Unknown]
  - Wrong technique in product usage process [Unknown]
